FAERS Safety Report 22176943 (Version 1)
Quarter: 2023Q2

REPORT INFORMATION
  Report Type: Spontaneous
  Country: SE (occurrence: SE)
  Receive Date: 20230405
  Receipt Date: 20230405
  Transmission Date: 20230721
  Serious: Yes (Hospitalization, Disabling)
  Sender: FDA-Public Use
  Company Number: None

PATIENT
  Age: 36 Year
  Sex: Male

DRUGS (12)
  1. RISPERDAL [Suspect]
     Active Substance: RISPERIDONE
     Indication: Behaviour disorder due to a general medical condition
     Dosage: 15-20 MG VB, MAX 30 MG /DAG
     Route: 048
     Dates: end: 20201106
  2. HALDOL [Concomitant]
     Active Substance: HALOPERIDOL
     Dosage: 1 MG 1 TABLETT MORGON, 0,5 TABLETT KVALL
     Route: 048
     Dates: end: 20201101
  3. PROMETHAZINE HYDROCHLORIDE [Concomitant]
     Active Substance: PROMETHAZINE HYDROCHLORIDE
     Dosage: 25 MG 1-2 VB MAX 2/DYGN
     Dates: start: 20201019
  4. SERTRALINE HYDROCHLORIDE [Concomitant]
     Active Substance: SERTRALINE HYDROCHLORIDE
     Dosage: 50 MG 2 TABLETT 1 GANG DAGLIGEN
     Route: 048
  5. LECROLYN [Concomitant]
     Dosage: 40 MG/ML 1 DROPPE MORGON, 1 DROPPE KVALL
     Route: 047
  6. MOMETASON ABECE [Concomitant]
     Dosage: 50 MIKROGRAM/DOS 2 SPRAYDOSER PER DAG
     Route: 045
  7. AERIUS (DESLORATADINE) [Concomitant]
     Active Substance: DESLORATADINE
     Dosage: 5 MG 1 TABLETT 1 GANG DAGLIGEN
     Route: 048
  8. MICROLAX [SODIUM CITRATE;SODIUM LAURYL SULFOACETATE] [Concomitant]
     Dosage: ENL SEPARAT BEHANDLINGSCHEMA
     Route: 048
  9. TRIMEPRAZINE [Concomitant]
     Active Substance: TRIMEPRAZINE
     Dosage: 40MG/ML 0,5-1 ML VID BEHOV, MAX 3 ML/DYGN
     Route: 048
  10. HERBALS\KARAYA GUM [Concomitant]
     Active Substance: HERBALS\KARAYA GUM
     Dosage: 1 PER DAG
     Route: 048
  11. AMDINOCILLIN PIVOXIL [Concomitant]
     Active Substance: AMDINOCILLIN PIVOXIL
     Dosage: 200 MG 1 TABLETT 3 GANGER DALIGEN
     Route: 048
     Dates: start: 20201016, end: 20201021
  12. DIAZEPAM [Concomitant]
     Active Substance: DIAZEPAM
     Dosage: 15-20 MG VB, MAX 30 MG /DAG
     Route: 048
     Dates: start: 20200812

REACTIONS (4)
  - Incontinence [Not Recovered/Not Resolved]
  - Musculoskeletal stiffness [Not Recovered/Not Resolved]
  - Restlessness [Unknown]
  - Insomnia [Recovered/Resolved]

NARRATIVE: CASE EVENT DATE: 20201001
